FAERS Safety Report 10145512 (Version 1)
Quarter: 2014Q2

REPORT INFORMATION
  Report Type: Spontaneous
  Country: US (occurrence: US)
  Receive Date: 20140501
  Receipt Date: 20140501
  Transmission Date: 20141212
  Serious: No
  Sender: FDA-Public Use
  Company Number: US-009507513-1404USA009089

PATIENT
  Age: 18 Year
  Sex: Female
  Weight: 76.64 kg

DRUGS (1)
  1. NEXPLANON [Suspect]
     Indication: CONTRACEPTION
     Dosage: ONE ROD EVERY THREE YEARS
     Route: 059
     Dates: start: 20140414

REACTIONS (4)
  - Contusion [Recovering/Resolving]
  - Discomfort [Recovering/Resolving]
  - Device difficult to use [Recovering/Resolving]
  - Product quality issue [Unknown]
